FAERS Safety Report 13244505 (Version 2)
Quarter: 2017Q4

REPORT INFORMATION
  Report Type: Spontaneous
  Country: US (occurrence: US)
  Receive Date: 20170216
  Receipt Date: 20171018
  Transmission Date: 20180320
  Serious: No
  Sender: FDA-Public Use
  Company Number: US-JAZZ-2017-US-000377

PATIENT
  Sex: Female

DRUGS (36)
  1. XYREM [Suspect]
     Active Substance: SODIUM OXYBATE
     Indication: NARCOLEPSY
     Dosage: 3 G, BID
     Route: 048
     Dates: start: 200306, end: 2003
  2. ABILIFY [Concomitant]
     Active Substance: ARIPIPRAZOLE
  3. ENALAPRIL MALEATE. [Concomitant]
     Active Substance: ENALAPRIL MALEATE
  4. SILVADENE [Concomitant]
     Active Substance: SILVER SULFADIAZINE
  5. XYZAL [Concomitant]
     Active Substance: LEVOCETIRIZINE DIHYDROCHLORIDE
  6. MOTRIN [Concomitant]
     Active Substance: IBUPROFEN
  7. DEPAKOTE [Concomitant]
     Active Substance: DIVALPROEX SODIUM
  8. LEVOTHYROXINE. [Concomitant]
     Active Substance: LEVOTHYROXINE
  9. SPIRONOLACTONE. [Concomitant]
     Active Substance: SPIRONOLACTONE
  10. VITAMIN D3 [Concomitant]
     Active Substance: CHOLECALCIFEROL
  11. ASPIRIN                            /00002701/ [Concomitant]
     Active Substance: ASPIRIN
  12. ESTRADIOL. [Concomitant]
     Active Substance: ESTRADIOL
  13. VIIBRYD [Concomitant]
     Active Substance: VILAZODONE HYDROCHLORIDE
  14. CLONAZEPAM. [Concomitant]
     Active Substance: CLONAZEPAM
  15. SYMBICORT [Concomitant]
     Active Substance: BUDESONIDE\FORMOTEROL FUMARATE DIHYDRATE
  16. FOLIC ACID. [Concomitant]
     Active Substance: FOLIC ACID
  17. GABAPENTIN. [Concomitant]
     Active Substance: GABAPENTIN
  18. TIZANIDINE. [Concomitant]
     Active Substance: TIZANIDINE
  19. VOLTAREN [Concomitant]
     Active Substance: DICLOFENAC SODIUM
  20. FUROSEMIDE. [Concomitant]
     Active Substance: FUROSEMIDE
  21. XYREM [Suspect]
     Active Substance: SODIUM OXYBATE
     Dosage: 4.5 G, BID
     Route: 048
     Dates: start: 2013
  22. BYSTOLIC [Concomitant]
     Active Substance: NEBIVOLOL HYDROCHLORIDE
  23. METHADONE [Concomitant]
     Active Substance: METHADONE HYDROCHLORIDE
  24. PANTOPRAZOLE [Concomitant]
     Active Substance: PANTOPRAZOLE
  25. HYDROCORTISONE. [Concomitant]
     Active Substance: HYDROCORTISONE
  26. XYREM [Suspect]
     Active Substance: SODIUM OXYBATE
     Dosage: DOSE ADJUSTMENT
     Route: 048
     Dates: start: 2003, end: 2013
  27. A-HYDROCORT [Concomitant]
     Active Substance: HYDROCORTISONE SODIUM SUCCINATE
  28. FOLBIC [Concomitant]
     Active Substance: CYANOCOBALAMIN\FOLIC ACID\PYRIDOXINE
  29. LANSOPRAZOLE. [Concomitant]
     Active Substance: LANSOPRAZOLE
  30. LAMICTAL [Concomitant]
     Active Substance: LAMOTRIGINE
  31. HYDROMORPHONE [Concomitant]
     Active Substance: HYDROMORPHONE
  32. FENTANYL. [Concomitant]
     Active Substance: FENTANYL
  33. OLANZAPINE. [Concomitant]
     Active Substance: OLANZAPINE
  34. CAMBIA [Concomitant]
     Active Substance: DICLOFENAC POTASSIUM
  35. METOPROLOL SUCC CT [Concomitant]
  36. ZOVIRAX [Concomitant]
     Active Substance: ACYCLOVIR

REACTIONS (3)
  - Migraine [Unknown]
  - Dizziness [Unknown]
  - Muscular weakness [Unknown]
